FAERS Safety Report 19196889 (Version 8)
Quarter: 2021Q4

REPORT INFORMATION
  Report Type: Report from Study
  Country: US (occurrence: US)
  Receive Date: 20210430
  Receipt Date: 20211110
  Transmission Date: 20220303
  Serious: Yes (Hospitalization, Other)
  Sender: FDA-Public Use
  Company Number: US-ABBVIE-20K-163-3447033-00

PATIENT
  Sex: Female
  Weight: 72.640 kg

DRUGS (9)
  1. HUMIRA [Suspect]
     Active Substance: ADALIMUMAB
     Indication: Rheumatoid arthritis
     Dosage: CITRATE FREE
     Route: 058
     Dates: start: 20191205
  2. HUMIRA [Suspect]
     Active Substance: ADALIMUMAB
     Indication: Crohn^s disease
     Dosage: CITRATE FREE
     Route: 058
     Dates: end: 202102
  3. HUMIRA [Suspect]
     Active Substance: ADALIMUMAB
     Dosage: CITRATE FREE
     Route: 058
     Dates: start: 2021, end: 2021
  4. HUMIRA [Suspect]
     Active Substance: ADALIMUMAB
     Route: 058
  5. PFIZER-BIONTECH COVID-19 VACCINE [Suspect]
     Active Substance: TOZINAMERAN
     Indication: COVID-19 immunisation
     Dosage: PFIZER
     Route: 030
     Dates: start: 20210302, end: 20210302
  6. PFIZER-BIONTECH COVID-19 VACCINE [Suspect]
     Active Substance: TOZINAMERAN
     Dosage: PFIZER
     Route: 030
     Dates: start: 20210323, end: 20210323
  7. PFIZER-BIONTECH COVID-19 VACCINE [Suspect]
     Active Substance: TOZINAMERAN
     Dosage: PFIZER
     Route: 030
     Dates: start: 20210815, end: 20210815
  8. CIPROFLOXACIN [Suspect]
     Active Substance: CIPROFLOXACIN
     Indication: Product used for unknown indication
     Route: 065
     Dates: start: 20200414, end: 202004
  9. TYLENOL [Suspect]
     Active Substance: ACETAMINOPHEN
     Indication: Pain
     Route: 065

REACTIONS (31)
  - Cataract [Unknown]
  - Pain [Recovered/Resolved]
  - Influenza like illness [Recovered/Resolved]
  - Nausea [Recovered/Resolved]
  - Pyrexia [Recovered/Resolved]
  - Hand deformity [Not Recovered/Not Resolved]
  - Finger deformity [Not Recovered/Not Resolved]
  - Condition aggravated [Not Recovered/Not Resolved]
  - Cardiac disorder [Unknown]
  - Osteoarthritis [Unknown]
  - Limb mass [Unknown]
  - Condition aggravated [Not Recovered/Not Resolved]
  - Tooth extraction [Recovered/Resolved]
  - Malaise [Unknown]
  - Peripheral swelling [Recovering/Resolving]
  - Poor quality sleep [Not Recovered/Not Resolved]
  - Depression [Not Recovered/Not Resolved]
  - Burning sensation [Unknown]
  - Diabetes mellitus [Unknown]
  - Drug ineffective [Unknown]
  - Urinary tract infection [Recovered/Resolved]
  - Urinary tract infection [Unknown]
  - Pain [Not Recovered/Not Resolved]
  - Peripheral swelling [Not Recovered/Not Resolved]
  - Erythema [Not Recovered/Not Resolved]
  - Diarrhoea [Not Recovered/Not Resolved]
  - Pain in extremity [Unknown]
  - Back pain [Not Recovered/Not Resolved]
  - Vomiting [Unknown]
  - Pain [Not Recovered/Not Resolved]
  - Pain in extremity [Recovering/Resolving]

NARRATIVE: CASE EVENT DATE: 20190101
